FAERS Safety Report 8833989 (Version 1)
Quarter: 2012Q4

REPORT INFORMATION
  Report Type: 
  Country: US (occurrence: US)
  Receive Date: 20121010
  Receipt Date: 20121010
  Transmission Date: 20130627
  Serious: Yes (Other)
  Sender: FDA-Public Use
  Company Number: CHPA2012US021039

PATIENT
  Sex: Female

DRUGS (8)
  1. BENEFIBER UNKNOWN [Suspect]
     Indication: CONSTIPATION
     Dosage: 2 scoops, QD
  2. BENEFIBER UNKNOWN [Suspect]
     Dosage: 1 scoop, BID
     Dates: start: 2010
  3. FOLIC ACID [Concomitant]
     Dosage: 1 mg, UNK
  4. LISINOPRIL [Concomitant]
     Indication: HYPERTENSION
     Dosage: 0.5 DF, QD
     Route: 048
  5. VITAMIN D [Concomitant]
     Indication: VITAMIN SUPPLEMENTATION
     Dosage: 1000 IU, UNK
  6. LUTEIN [Concomitant]
     Indication: VITAMIN SUPPLEMENTATION
     Dosage: 20 mg, UNK
  7. CALCIUM [Concomitant]
     Indication: VITAMIN SUPPLEMENTATION
     Dosage: Unk, Unk
  8. VITAMIN E [Concomitant]
     Indication: VITAMIN SUPPLEMENTATION
     Dosage: Unk, Unk

REACTIONS (3)
  - Gout [Not Recovered/Not Resolved]
  - Off label use [Unknown]
  - Incorrect dose administered [Unknown]
